FAERS Safety Report 12385151 (Version 1)
Quarter: 2016Q2

REPORT INFORMATION
  Report Type: Spontaneous
  Country: FR (occurrence: FR)
  Receive Date: 20160519
  Receipt Date: 20160519
  Transmission Date: 20160815
  Serious: Yes (Other)
  Sender: FDA-Public Use
  Company Number: FR-PFIZER INC-2016254970

PATIENT
  Age: 74 Year
  Sex: Female

DRUGS (16)
  1. AERIUS [Concomitant]
     Active Substance: DESLORATADINE
  2. KAYEXALATE [Concomitant]
     Active Substance: SODIUM POLYSTYRENE SULFONATE
  3. LYRICA [Suspect]
     Active Substance: PREGABALIN
     Indication: NEUROPATHY PERIPHERAL
     Dosage: 150 MG, 1X/DAY
     Route: 048
     Dates: end: 20141226
  4. LASILIX [Concomitant]
     Active Substance: FUROSEMIDE
     Dosage: 40 MG, UNK
  5. ZAMUDOL [Suspect]
     Active Substance: TRAMADOL HYDROCHLORIDE
     Indication: DIABETIC NEUROPATHY
     Dosage: 150 MG, 2X/DAY
     Route: 048
     Dates: end: 20141226
  6. INEXIUM [Concomitant]
     Active Substance: ESOMEPRAZOLE
  7. TAHOR [Concomitant]
     Active Substance: ATORVASTATIN CALCIUM
     Dosage: 10 MG, UNK
  8. PLAVIX [Concomitant]
     Active Substance: CLOPIDOGREL BISULFATE
     Dosage: 75 MG, UNK
  9. DOLIPRANE [Concomitant]
     Active Substance: ACETAMINOPHEN
  10. NOVORAPID [Concomitant]
     Active Substance: INSULIN ASPART
  11. BISOCE [Concomitant]
     Active Substance: BISOPROLOL
     Dosage: 3.75 MG, UNK
  12. FORLAX [Concomitant]
     Active Substance: POLYETHYLENE GLYCOL 4000
  13. CALCIDOSE [Concomitant]
     Active Substance: CALCIUM CARBONATE
  14. LEVEMIR [Concomitant]
     Active Substance: INSULIN DETEMIR
  15. OROKEN [Concomitant]
     Active Substance: CEFIXIME
  16. UVEDOSE [Concomitant]
     Active Substance: CHOLECALCIFEROL

REACTIONS (5)
  - Renal impairment [Unknown]
  - Diabetic ketoacidosis [Unknown]
  - Lung infection [Unknown]
  - Condition aggravated [Unknown]
  - Hallucination, visual [Recovered/Resolved]

NARRATIVE: CASE EVENT DATE: 20141226
